FAERS Safety Report 9929393 (Version 1)
Quarter: 2014Q1

REPORT INFORMATION
  Report Type: Spontaneous
  Country: CN (occurrence: CN)
  Receive Date: 20140227
  Receipt Date: 20140227
  Transmission Date: 20141002
  Serious: Yes (Hospitalization)
  Sender: FDA-Public Use
  Company Number: CN-BAYER-2014-028616

PATIENT
  Age: 83 Year
  Sex: Female

DRUGS (4)
  1. ACETYLSALICYLIC ACID (} 100 MG) [Suspect]
     Indication: CEREBROVASCULAR ACCIDENT PROPHYLAXIS
     Dosage: 200 MG, QD FOR 7 DAYS
  2. GLIMEPIRIDE [Concomitant]
     Indication: DIABETES MELLITUS
  3. FELODIPINE [Concomitant]
     Indication: HYPERTENSION
  4. ATORVASTATIN [Concomitant]
     Indication: TRANSIENT ISCHAEMIC ATTACK
     Dosage: 20 MG, QD,FOR 7 DAYS

REACTIONS (1)
  - Transient ischaemic attack [Recovered/Resolved]
